FAERS Safety Report 6785836-4 (Version None)
Quarter: 2010Q2

REPORT INFORMATION
  Report Type: 
  Country: None (occurrence: None)
  Receive Date: 20100623
  Receipt Date: 20100610
  Transmission Date: 20101027
  Serious: Yes (Hospitalization)
  Sender: FDA-Public Use
  Company Number: FR-PFIZER INC-2010072626

PATIENT
  Age: 43 Year
  Sex: Female

DRUGS (6)
  1. SALAZOPYRIN [Suspect]
     Dosage: UNK
     Route: 048
     Dates: start: 20100401, end: 20100409
  2. TRIMEBUTINE [Concomitant]
  3. REMICADE [Concomitant]
     Dosage: 300 MG, UNK
     Dates: start: 20091204
  4. REMICADE [Concomitant]
     Dosage: UNK
     Dates: start: 20091218
  5. REMICADE [Concomitant]
     Dosage: UNK
     Dates: start: 20100113
  6. REMICADE [Concomitant]
     Dosage: UNK
     Dates: start: 20100409

REACTIONS (1)
  - LUNG DISORDER [None]
